FAERS Safety Report 6789660-8 (Version None)
Quarter: 2010Q2

REPORT INFORMATION
  Report Type: 
  Country: None (occurrence: None)
  Receive Date: 20100624
  Receipt Date: 20100617
  Transmission Date: 20101027
  Serious: No
  Sender: FDA-Public Use
  Company Number: US-BIOGENIDEC-2010BI020205

PATIENT
  Age: 49 Year
  Sex: Female

DRUGS (3)
  1. AVONEX [Suspect]
     Indication: MULTIPLE SCLEROSIS
     Route: 030
     Dates: start: 20060601, end: 20100526
  2. LYRICA [Concomitant]
     Indication: VIBRATORY SENSE INCREASED
  3. LYRICA [Concomitant]
     Indication: PARAESTHESIA

REACTIONS (9)
  - BURNING SENSATION [None]
  - COGNITIVE DISORDER [None]
  - DRUG SPECIFIC ANTIBODY PRESENT [None]
  - HYPOAESTHESIA [None]
  - LIMB DISCOMFORT [None]
  - MULTIPLE SCLEROSIS [None]
  - PERIPHERAL COLDNESS [None]
  - RAYNAUD'S PHENOMENON [None]
  - SKIN DISCOLOURATION [None]
